FAERS Safety Report 22048075 (Version 2)
Quarter: 2023Q2

REPORT INFORMATION
  Report Type: Spontaneous
  Country: US (occurrence: US)
  Receive Date: 20230301
  Receipt Date: 20230414
  Transmission Date: 20230721
  Serious: Yes (Other)
  Sender: FDA-Public Use
  Company Number: US-AMGEN-USASP2023033244

PATIENT
  Age: 72 Year
  Sex: Male
  Weight: 69 kg

DRUGS (2)
  1. BLINCYTO [Suspect]
     Active Substance: BLINATUMOMAB
     Indication: Acute lymphocytic leukaemia
     Dosage: 28 MICROGRAM PER CUBIC METRE, QD
     Route: 040
     Dates: start: 20221122
  2. BLINCYTO [Suspect]
     Active Substance: BLINATUMOMAB
     Indication: Acute myeloid leukaemia
     Dosage: 28 MICROGRAM PER CUBIC METRE, QD
     Route: 040

REACTIONS (2)
  - Nervous system disorder [Recovered/Resolved]
  - Tremor [Recovered/Resolved]
